FAERS Safety Report 5320330-9 (Version None)
Quarter: 2007Q1

REPORT INFORMATION
  Report Type: 
  Country: None (occurrence: None)
  Receive Date: 20070209
  Receipt Date: 20061129
  Transmission Date: 20070707
  Serious: Yes (Other)
  Sender: FDA-Public Use
  Company Number: T200601381

PATIENT
  Sex: Male
  Weight: 79.4 kg

DRUGS (1)
  1. OPTIMARK [Suspect]
     Indication: NUCLEAR MAGNETIC RESONANCE IMAGING BRAIN
     Dosage: 16 ML, SINGLE
     Dates: start: 20061129, end: 20061129

REACTIONS (3)
  - DIZZINESS [None]
  - SYNCOPE [None]
  - VERTIGO [None]
